FAERS Safety Report 20035930 (Version 2)
Quarter: 2023Q2

REPORT INFORMATION
  Report Type: Spontaneous
  Country: CZ (occurrence: CZ)
  Receive Date: 20211105
  Receipt Date: 20230417
  Transmission Date: 20230722
  Serious: Yes (Life-Threatening, Hospitalization, Other)
  Sender: FDA-Public Use
  Company Number: CZ-CZSUKL-21011306

PATIENT
  Age: 17 Year
  Sex: Female
  Weight: 60 kg

DRUGS (8)
  1. ACETAMINOPHEN [Suspect]
     Active Substance: ACETAMINOPHEN
     Indication: Suicide attempt
     Dosage: 12 GRAM (PARACETAMOLUM BLOOD LEVEL 850,4 UMOL/L WHEN HOSPITALISED)
     Route: 048
     Dates: start: 20210913, end: 20210913
  2. BROMAZEPAM [Concomitant]
     Active Substance: BROMAZEPAM
     Indication: Suicide attempt
     Dosage: 3 MILLIGRAM (DOSE MIGHT BE HIGHER, UP TO 20 MG)
     Route: 048
     Dates: start: 20210913, end: 20210913
  3. MIRTAZAPINE [Concomitant]
     Active Substance: MIRTAZAPINE
     Indication: Suicide attempt
     Dosage: 150 MICROGRAM
     Route: 048
     Dates: start: 20210913, end: 20210913
  4. Novalgin [Concomitant]
     Indication: Suicide attempt
     Dosage: MAXIMAL DOSE INTAKE 3 G (BUT PROBABLY LESS)
     Route: 048
     Dates: start: 20210913, end: 20210913
  5. ZOLPINOX [Concomitant]
     Indication: Suicide attempt
     Dosage: 10 MILLIGRAM
     Route: 048
     Dates: start: 20210913, end: 20210913
  6. ACETYLCYSTEINE [Concomitant]
     Active Substance: ACETYLCYSTEINE
     Indication: Product used for unknown indication
     Dosage: UNK
     Route: 065
  7. FLUOXETINE HYDROCHLORIDE [Concomitant]
     Active Substance: FLUOXETINE HYDROCHLORIDE
     Indication: Suicide attempt
     Dosage: UNK
     Route: 065
  8. CHLORPROTHIXENE [Concomitant]
     Active Substance: CHLORPROTHIXENE
     Indication: Suicide attempt
     Dosage: UNK
     Route: 065

REACTIONS (4)
  - Altered state of consciousness [Recovered/Resolved with Sequelae]
  - Brain oedema [Recovered/Resolved with Sequelae]
  - Immune system disorder [Recovered/Resolved with Sequelae]
  - Hypophosphataemia [Recovered/Resolved with Sequelae]

NARRATIVE: CASE EVENT DATE: 20210913
